FAERS Safety Report 15753332 (Version 1)
Quarter: 2018Q4

REPORT INFORMATION
  Report Type: Spontaneous
  Country: SE (occurrence: SE)
  Receive Date: 20181222
  Receipt Date: 20181222
  Transmission Date: 20190205
  Serious: Yes (Other)
  Sender: FDA-Public Use
  Company Number: SE-TEVA-2018-SE-989691

PATIENT
  Age: 25 Year
  Sex: Female
  Weight: 77 kg

DRUGS (8)
  1. PREGABALIN. [Concomitant]
     Active Substance: PREGABALIN
     Route: 065
  2. OXASCAND [Concomitant]
     Active Substance: OXAZEPAM
     Route: 065
  3. FLUOXETINE [Suspect]
     Active Substance: FLUOXETINE HYDROCHLORIDE
     Dosage: 1 TABLET 1G / DAY FOR 10 DAYS, THEN 2 TABLETS 1G / DAY
     Route: 065
     Dates: start: 20181117, end: 20181120
  4. LEVAXIN [Concomitant]
     Active Substance: LEVOTHYROXINE SODIUM
     Route: 065
  5. LERGIGAN [Concomitant]
     Route: 065
  6. STILNOCT [Concomitant]
     Active Substance: ZOLPIDEM TARTRATE
     Route: 065
  7. ETALPHA [Concomitant]
     Active Substance: ALFACALCIDOL
     Route: 065
  8. FLUOXETINE [Suspect]
     Active Substance: FLUOXETINE HYDROCHLORIDE
     Indication: CHRONIC FATIGUE SYNDROME
     Dosage: 10 MILLIGRAM DAILY; 1 TABLET 1G / DAY FOR 10 DAYS, THEN 2 TABLETS 1G / DAY
     Route: 065
     Dates: start: 20181107, end: 20181116

REACTIONS (1)
  - Petit mal epilepsy [Recovering/Resolving]

NARRATIVE: CASE EVENT DATE: 20181117
